FAERS Safety Report 6096724-3 (Version None)
Quarter: 2009Q1

REPORT INFORMATION
  Report Type: 
  Country: None (occurrence: None)
  Receive Date: 20090225
  Receipt Date: 20090213
  Transmission Date: 20090719
  Serious: Yes (Other)
  Sender: FDA-Public Use
  Company Number: 2009-00628

PATIENT
  Age: 62 Year
  Sex: Female
  Weight: 57 kg

DRUGS (7)
  1. VELCADE [Suspect]
     Indication: PLASMACYTOMA
     Dosage: 1.3 MG/M2, INTRAVENOUS
     Route: 042
     Dates: start: 20090128, end: 20090128
  2. DIFLUCAN [Suspect]
     Indication: CANDIDIASIS
     Dosage: 200 MG, ORAL
     Route: 048
     Dates: start: 20090127, end: 20090129
  3. ALDACTONE [Concomitant]
  4. TRAMADOL HCL [Concomitant]
  5. DEXAMETHASONE [Concomitant]
  6. LORAZEPAM [Concomitant]
  7. VALACYCLOVIR [Concomitant]

REACTIONS (2)
  - DRUG INTERACTION [None]
  - SINUS BRADYCARDIA [None]
